FAERS Safety Report 15750647 (Version 2)
Quarter: 2018Q4

REPORT INFORMATION
  Report Type: Spontaneous
  Country: US (occurrence: US)
  Receive Date: 20181221
  Receipt Date: 20181227
  Transmission Date: 20190205
  Serious: No
  Sender: FDA-Public Use
  Company Number: US-SA-2018SA343516

PATIENT
  Age: 71 Year
  Sex: Female

DRUGS (1)
  1. ACT DRY MOUTH LOZENGES [Suspect]
     Active Substance: XYLITOL
     Indication: DRY MOUTH

REACTIONS (1)
  - Oral discomfort [Unknown]
